FAERS Safety Report 17435133 (Version 1)
Quarter: 2020Q1

REPORT INFORMATION
  Report Type: Spontaneous
  Country: US (occurrence: US)
  Receive Date: 20200218
  Receipt Date: 20200218
  Transmission Date: 20200409
  Serious: Yes (Other)
  Sender: FDA-Public Use
  Company Number: None

PATIENT
  Age: 69 Year
  Sex: Female
  Weight: 83.25 kg

DRUGS (11)
  1. GABAPENTIN 300 MG CAPSULE MFR: CIPLA USA INC [Suspect]
     Active Substance: GABAPENTIN
     Indication: PAIN
     Dosage: ?          QUANTITY:1 CAPSULE(S);?
     Route: 048
     Dates: start: 20200113, end: 20200218
  2. TYLENOL [Concomitant]
     Active Substance: ACETAMINOPHEN
  3. TENS UNIT [Concomitant]
  4. VITAMIN D [Concomitant]
     Active Substance: VITAMIN D NOS
  5. ALPRAZOLAM. [Concomitant]
     Active Substance: ALPRAZOLAM
  6. AMLODOPINE [Concomitant]
     Active Substance: AMLODIPINE BESYLATE
  7. LOSARTAN. [Concomitant]
     Active Substance: LOSARTAN
  8. BABY ASPIRIN [Concomitant]
     Active Substance: ASPIRIN
  9. ULTRAM [Concomitant]
     Active Substance: TRAMADOL HYDROCHLORIDE
  10. CO-Q 10 [Concomitant]
     Active Substance: UBIDECARENONE
  11. COSAMIN DS [Concomitant]
     Active Substance: GLUCOSAMINE HYDROCHLORIDE\SODIUM CHONDROITIN SULFATE

REACTIONS (15)
  - Dizziness [None]
  - Myalgia [None]
  - Arthralgia [None]
  - Vertigo [None]
  - Vomiting [None]
  - Hyperhidrosis [None]
  - Abdominal discomfort [None]
  - Headache [None]
  - Chills [None]
  - Nausea [None]
  - Feeding disorder [None]
  - Abdominal pain upper [None]
  - Balance disorder [None]
  - Rash [None]
  - Influenza like illness [None]

NARRATIVE: CASE EVENT DATE: 20200115
